FAERS Safety Report 24964641 (Version 1)
Quarter: 2025Q1

REPORT INFORMATION
  Report Type: Spontaneous
  Country: US (occurrence: US)
  Receive Date: 20250213
  Receipt Date: 20250213
  Transmission Date: 20250408
  Serious: Yes (Other)
  Sender: COOPERSURGICAL
  Company Number: US-COOPERSURGICAL, INC.-2025CPS000762

PATIENT
  Age: 27 Year
  Sex: Female
  Weight: 113.38 kg

DRUGS (2)
  1. PARAGARD T 380A [Suspect]
     Active Substance: COPPER
     Indication: Contraception
     Route: 015
     Dates: start: 20130801
  2. ALBUTEROL SULFATE [Concomitant]
     Active Substance: ALBUTEROL SULFATE
     Dates: start: 201201

REACTIONS (20)
  - Reproductive complication associated with device [Not Recovered/Not Resolved]
  - Abortion spontaneous [Recovered/Resolved]
  - Peripheral venous disease [Not Recovered/Not Resolved]
  - Device breakage [Recovered/Resolved]
  - Complication of device removal [Recovered/Resolved]
  - Procedural pain [Recovered/Resolved]
  - Procedural haemorrhage [Recovered/Resolved]
  - Depression [Unknown]
  - Anxiety [Unknown]
  - Post-traumatic stress disorder [Unknown]
  - Psychological trauma [Unknown]
  - Emotional disorder [Unknown]
  - Sexual dysfunction [Not Recovered/Not Resolved]
  - Mental disorder [Not Recovered/Not Resolved]
  - Abdominal pain [Recovered/Resolved]
  - Back pain [Recovered/Resolved]
  - Pelvic pain [Recovered/Resolved]
  - Heavy menstrual bleeding [Not Recovered/Not Resolved]
  - Abnormal uterine bleeding [Not Recovered/Not Resolved]
  - Menstrual disorder [Not Recovered/Not Resolved]

NARRATIVE: CASE EVENT DATE: 20130801
